FAERS Safety Report 4639299-5 (Version None)
Quarter: 2005Q2

REPORT INFORMATION
  Report Type: 
  Country: None (occurrence: None)
  Receive Date: 20050418
  Receipt Date: 20050406
  Transmission Date: 20051028
  Serious: Yes (Death)
  Sender: FDA-Public Use
  Company Number: USA-2005-0019550

PATIENT
  Age: 55 Year
  Sex: Female
  Weight: 65.3 kg

DRUGS (3)
  1. OXYCONTIN [Suspect]
     Indication: PAIN
     Dosage: MG, SEE TEXT
     Dates: start: 20010529
  2. PROZAC [Concomitant]
  3. SINEMET [Concomitant]

REACTIONS (5)
  - DRUG TOXICITY [None]
  - HYPOTONIA [None]
  - MULTIPLE DRUG OVERDOSE [None]
  - OBSTRUCTIVE AIRWAYS DISORDER [None]
  - SOMNOLENCE [None]
